FAERS Safety Report 9760106 (Version 2)
Quarter: 2014Q2

REPORT INFORMATION
  Report Type: Report from Study
  Country: ES (occurrence: ES)
  Receive Date: 20131216
  Receipt Date: 20140515
  Transmission Date: 20141212
  Serious: Yes (Hospitalization)
  Sender: FDA-Public Use
  Company Number: ES-009507513-1312ESP004882

PATIENT
  Age: 58 Year
  Sex: Female
  Weight: 61 kg

DRUGS (1)
  1. INTERFERON ALFA-2B [Suspect]
     Indication: MALIGNANT MELANOMA
     Dosage: 9,15M1/M2, THREE DAYS PER WEEK (ALTERNATIVE DAYS)
     Route: 058
     Dates: start: 20040903, end: 20041103

REACTIONS (2)
  - Cellulitis [Recovered/Resolved]
  - Soft tissue infection [Recovered/Resolved]
